FAERS Safety Report 19180200 (Version 2)
Quarter: 2021Q2

REPORT INFORMATION
  Report Type: Report from Study
  Country: CA (occurrence: CA)
  Receive Date: 20210426
  Receipt Date: 20210430
  Transmission Date: 20210717
  Serious: Yes (Other)
  Sender: FDA-Public Use
  Company Number: CA-SAMSUNG BIOEPIS-SB-2021-10123

PATIENT
  Age: 57 Year
  Sex: Female

DRUGS (2)
  1. RENFLEXIS [Suspect]
     Active Substance: INFLIXIMAB-ABDA
     Indication: SARCOIDOSIS
     Route: 042
     Dates: start: 20191220, end: 20210219
  2. RENFLEXIS [Suspect]
     Active Substance: INFLIXIMAB-ABDA
     Route: 042
     Dates: start: 20210416

REACTIONS (6)
  - Tremor [Unknown]
  - Pain in extremity [Unknown]
  - Dysphagia [Unknown]
  - Nervousness [Unknown]
  - Product use in unapproved indication [Unknown]
  - Somnolence [Unknown]

NARRATIVE: CASE EVENT DATE: 20210416
